FAERS Safety Report 12816254 (Version 1)
Quarter: 2016Q4

REPORT INFORMATION
  Report Type: Spontaneous
  Country: US (occurrence: US)
  Receive Date: 20161004
  Receipt Date: 20161004
  Transmission Date: 20170207
  Serious: Yes (Other)
  Sender: FDA-Public Use
  Company Number: None

PATIENT
  Age: 9 Month
  Sex: Male

DRUGS (2)
  1. ZANTAC [Concomitant]
     Active Substance: RANITIDINE HYDROCHLORIDE
  2. BABY TEETHING (HYLAND HOMEOPATHIC) [Suspect]
     Active Substance: HOMEOPATHICS
     Indication: TEETHING
     Dosage: ?          QUANTITY:1 TABLET(S);?
     Dates: start: 20081101

REACTIONS (2)
  - Crying [None]
  - Tremor [None]

NARRATIVE: CASE EVENT DATE: 20081101
